FAERS Safety Report 4309573-0 (Version None)
Quarter: 2004Q1

REPORT INFORMATION
  Report Type: 
  Country: None (occurrence: None)
  Receive Date: 20040301
  Receipt Date: 20040218
  Transmission Date: 20041129
  Serious: Yes (Disabling)
  Sender: FDA-Public Use
  Company Number: 2004011156

PATIENT
  Age: 74 Year
  Sex: Female
  Weight: 70 kg

DRUGS (5)
  1. QUINAPRIL HCL [Suspect]
     Indication: ILL-DEFINED DISORDER
     Dosage: ORAL
     Route: 048
     Dates: start: 20030901, end: 20031201
  2. FRUMIL (FUROSEMIDE, AMILORIDE HYDROCHLORIDE) [Concomitant]
  3. FLUOXETINE [Concomitant]
  4. DOTHIEPIN HYDROCHLORIDE [Concomitant]
  5. OMEPRAZOLE [Concomitant]

REACTIONS (2)
  - EYE DISORDER [None]
  - VISION BLURRED [None]
